FAERS Safety Report 4848703-9 (Version None)
Quarter: 2005Q4

REPORT INFORMATION
  Report Type: 
  Country: None (occurrence: None)
  Receive Date: 20051208
  Receipt Date: 20051128
  Transmission Date: 20060501
  Serious: Yes (Other)
  Sender: FDA-Public Use
  Company Number: JP-BRISTOL-MYERS SQUIBB COMPANY-13201819

PATIENT
  Age: 58 Year
  Sex: Male

DRUGS (1)
  1. GATIFLO [Suspect]
     Route: 048
     Dates: start: 20040201, end: 20040301

REACTIONS (2)
  - INTERSTITIAL LUNG DISEASE [None]
  - LIVER DISORDER [None]
